FAERS Safety Report 9050984 (Version 1)
Quarter: 2013Q1

REPORT INFORMATION
  Report Type: Spontaneous
  Country: FR (occurrence: FR)
  Receive Date: 20130205
  Receipt Date: 20130205
  Transmission Date: 20140127
  Serious: Yes (Hospitalization)
  Sender: FDA-Public Use
  Company Number: FR-PFIZER INC-2013039961

PATIENT
  Age: 70 Year
  Sex: Male

DRUGS (5)
  1. XANAX [Suspect]
     Dosage: 0.5 MG (1 DF), SINGLE
     Route: 048
     Dates: start: 20121216
  2. ARANESP [Concomitant]
     Dosage: UNK
  3. KEPPRA [Concomitant]
     Dosage: UNK
  4. TARDYFERON [Concomitant]
     Dosage: UNK
  5. VITAMIN B12 [Concomitant]
     Dosage: UNK

REACTIONS (1)
  - Encephalopathy [Recovering/Resolving]
